FAERS Safety Report 22194024 (Version 4)
Quarter: 2023Q2

REPORT INFORMATION
  Report Type: Report from Study
  Country: CA (occurrence: CA)
  Receive Date: 20230411
  Receipt Date: 20230613
  Transmission Date: 20230722
  Serious: Yes (Hospitalization, Other)
  Sender: FDA-Public Use
  Company Number: CA-JNJFOC-20230241054

PATIENT
  Age: 20 Year
  Sex: Female
  Weight: 59.7 kg

DRUGS (1)
  1. REMICADE [Suspect]
     Active Substance: INFLIXIMAB
     Indication: Crohn^s disease
     Dosage: LAST INFUSED ON 01-DEC-2022., PATIENT WOULD RECEIVE DOSE ON REPORTING DAY IN HOSPITAL. EXPIRY DATE:
     Route: 042
     Dates: start: 20170929

REACTIONS (6)
  - Kidney infection [Unknown]
  - Pyoderma gangrenosum [Unknown]
  - Autoimmune disorder [Unknown]
  - Rash [Unknown]
  - Skin infection [Recovered/Resolved]
  - Pharyngeal swelling [Unknown]

NARRATIVE: CASE EVENT DATE: 20230101
